FAERS Safety Report 26051850 (Version 1)
Quarter: 2025Q4

REPORT INFORMATION
  Report Type: Report from Study
  Country: US (occurrence: US)
  Receive Date: 20251117
  Receipt Date: 20251117
  Transmission Date: 20260117
  Serious: Yes (Other)
  Sender: ABBVIE
  Company Number: US-ABBVIE-6546917

PATIENT
  Age: 44 Year
  Sex: Female

DRUGS (1)
  1. RINVOQ [Suspect]
     Active Substance: UPADACITINIB
     Indication: Crohn^s disease
     Dosage: LAST ADMIN DATE: 2025
     Route: 048
     Dates: start: 202503

REACTIONS (2)
  - Small intestine operation [Recovering/Resolving]
  - Large intestine operation [Recovering/Resolving]

NARRATIVE: CASE EVENT DATE: 20250926
